FAERS Safety Report 9155920 (Version 2)
Quarter: 2018Q3

REPORT INFORMATION
  Report Type: Spontaneous
  Country: IT (occurrence: IT)
  Receive Date: 20130311
  Receipt Date: 20180710
  Transmission Date: 20181010
  Serious: Yes (Life-Threatening, Hospitalization)
  Sender: FDA-Public Use
  Company Number: PHHY2013IT023321

PATIENT
  Age: 53 Year
  Sex: Female

DRUGS (3)
  1. CAMPTO [Suspect]
     Active Substance: IRINOTECAN
     Indication: COLON CANCER METASTATIC
     Dosage: 299 MG, CYCLIC DOSE
     Route: 042
     Dates: start: 20120602
  2. OXALIPLATIN SANDOZ [Suspect]
     Active Substance: OXALIPLATIN
     Indication: COLON CANCER METASTATIC
     Dosage: 154 MG, CYCLIC
     Route: 042
     Dates: start: 20120801, end: 20130213
  3. OXALIPLATIN SANDOZ [Suspect]
     Active Substance: OXALIPLATIN
     Dosage: 190 MG, CYCLIC
     Route: 042

REACTIONS (12)
  - Dyspnoea [Recovering/Resolving]
  - Vomiting [Recovering/Resolving]
  - Abdominal pain [Unknown]
  - Tremor [Recovering/Resolving]
  - Vomiting [Unknown]
  - Nausea [Unknown]
  - Abdominal pain upper [Recovering/Resolving]
  - Erythema [Recovering/Resolving]
  - Loss of consciousness [Unknown]
  - Oxygen saturation decreased [Recovering/Resolving]
  - Erythema [Unknown]
  - Hypotension [Unknown]

NARRATIVE: CASE EVENT DATE: 20130213
